FAERS Safety Report 9352705 (Version 1)
Quarter: 2013Q2

REPORT INFORMATION
  Report Type: Spontaneous
  Country: IT (occurrence: IT)
  Receive Date: 20130618
  Receipt Date: 20130618
  Transmission Date: 20140414
  Serious: Yes (Other)
  Sender: FDA-Public Use
  Company Number: IT-PFIZER INC-2013177890

PATIENT
  Age: 72 Year
  Sex: Female

DRUGS (3)
  1. SUNITINIB MALATE [Suspect]
     Indication: ANGIOSARCOMA
     Dosage: 50/25 MG ON ALTERNATE DAYS, FOR 4 WEEKS ON/2 WEEKS OFF
  2. SUNITINIB MALATE [Suspect]
     Dosage: 25 MG, 1X/DAY
  3. ZOLEDRONIC ACID [Concomitant]
     Indication: DISEASE PROGRESSION
     Dosage: FOR 4 WEEKS ON/2 WEEKS OFF.

REACTIONS (6)
  - Off label use [Unknown]
  - Pericardial effusion [Unknown]
  - Hypertension [Unknown]
  - Pleural effusion [Unknown]
  - Palmar-plantar erythrodysaesthesia syndrome [Unknown]
  - Mucosal inflammation [Unknown]
